FAERS Safety Report 6228941-3 (Version None)
Quarter: 2009Q2

REPORT INFORMATION
  Report Type: 
  Country: None (occurrence: None)
  Receive Date: 20090615
  Receipt Date: 20090610
  Transmission Date: 20091009
  Serious: No
  Sender: FDA-Public Use
  Company Number: AU-BRISTOL-MYERS SQUIBB COMPANY-14442545

PATIENT
  Age: 51 Year
  Sex: Female

DRUGS (5)
  1. ORENCIA [Suspect]
     Indication: RHEUMATOID ARTHRITIS
  2. METHOTREXATE [Concomitant]
     Route: 048
  3. TEGRETOL [Concomitant]
     Route: 048
  4. LAMICTAL [Concomitant]
     Route: 048
  5. KEPPRA [Concomitant]
     Route: 048

REACTIONS (1)
  - GRAND MAL CONVULSION [None]
